FAERS Safety Report 25930510 (Version 1)
Quarter: 2025Q4

REPORT INFORMATION
  Report Type: Spontaneous
  Country: EU (occurrence: EU)
  Receive Date: 20251016
  Receipt Date: 20251016
  Transmission Date: 20260117
  Serious: Yes (Other)
  Sender: AMGEN
  Company Number: EU-AMGEN-DEUSP2025204346

PATIENT
  Age: 64 Year
  Sex: Male

DRUGS (3)
  1. XGEVA [Suspect]
     Active Substance: DENOSUMAB
     Indication: Neuroendocrine carcinoma of the skin
     Dosage: UNK
     Route: 065
     Dates: start: 202010, end: 202210
  2. AVELUMAB [Concomitant]
     Active Substance: AVELUMAB
     Indication: Neuroendocrine carcinoma of the skin
     Dosage: UNK
     Dates: start: 202010, end: 202210
  3. ETOPOSIDE [Concomitant]
     Active Substance: ETOPOSIDE
     Indication: Neuroendocrine carcinoma of the skin
     Route: 048

REACTIONS (1)
  - Metastases to lymph nodes [Unknown]
